FAERS Safety Report 4679803-4 (Version None)
Quarter: 2005Q2

REPORT INFORMATION
  Report Type: 
  Country: None (occurrence: None)
  Receive Date: 20050602
  Receipt Date: 20040920
  Transmission Date: 20051028
  Serious: No
  Sender: FDA-Public Use
  Company Number: GB-MERCK-0409GBR00189M

PATIENT
  Age: 26 Year
  Sex: Female

DRUGS (1)
  1. PROPECIA [Suspect]
     Indication: MALE PATTERN BALDNESS
     Route: 048
     Dates: start: 20040701, end: 20040901

REACTIONS (5)
  - DRUG EXPOSURE DURING PREGNANCY [None]
  - FOETAL DISTRESS SYNDROME [None]
  - PLACENTAL INSUFFICIENCY [None]
  - TRANSMISSION OF DRUG VIA SEMEN [None]
  - URINARY TRACT INFECTION [None]
